FAERS Safety Report 15540085 (Version 8)
Quarter: 2019Q4

REPORT INFORMATION
  Report Type: Spontaneous
  Country: JP (occurrence: JP)
  Receive Date: 20181023
  Receipt Date: 20191205
  Transmission Date: 20200122
  Serious: Yes (Other)
  Sender: FDA-Public Use
  Company Number: JP-AMGEN-JPNSP2018147709

PATIENT
  Age: 86 Year
  Sex: Male

DRUGS (40)
  1. NESP [Suspect]
     Active Substance: DARBEPOETIN ALFA
     Indication: NEPHROGENIC ANAEMIA
     Dosage: 60 MICROGRAM, Q4WK
     Route: 065
     Dates: start: 20180803, end: 20180831
  2. METHYCOBAL [Concomitant]
     Active Substance: METHYLCOBALAMIN
     Dosage: 500 UG, TID, AFTER BREAKFAST, LUNCH AND DINNER
     Route: 048
     Dates: end: 20180727
  3. WARFARIN [Concomitant]
     Active Substance: WARFARIN
     Dosage: 3.5 MG, QD, AFTER DINNER
     Route: 048
     Dates: start: 20180803, end: 20180830
  4. SULTAMUGIN [Concomitant]
     Dosage: 1 G
     Route: 042
     Dates: start: 20180726, end: 20180726
  5. WARFARIN [Concomitant]
     Active Substance: WARFARIN
     Dosage: 3.5 MG, QD, AFTER DINNER
     Route: 048
     Dates: start: 20180831, end: 20181108
  6. MIRCERA [Concomitant]
     Active Substance: METHOXY POLYETHYLENE GLYCOL-EPOETIN BETA
     Dosage: 150 UG
     Route: 058
     Dates: start: 20181106, end: 20181106
  7. CALONAL [Concomitant]
     Active Substance: ACETAMINOPHEN
     Dosage: 400 MG, PRN, WHEN HAVING PAIN OR FEVER
     Route: 048
  8. TELMISARTAN. [Concomitant]
     Active Substance: TELMISARTAN
     Dosage: 80 MILLIGRAM
     Route: 048
     Dates: start: 20181116, end: 20181206
  9. FEBURIC [Concomitant]
     Active Substance: FEBUXOSTAT
     Dosage: 20 MG
     Route: 048
     Dates: start: 20181116, end: 20181206
  10. HERBESSER [Concomitant]
     Active Substance: DILTIAZEM HYDROCHLORIDE
     Dosage: 100 MG, QD,AFTER BREAKFAST
     Route: 048
     Dates: start: 20180803, end: 20181113
  11. WARFARIN [Concomitant]
     Active Substance: WARFARIN
     Dosage: 3.5 MG, QD, AFTER DINNER
     Route: 048
     Dates: end: 20180727
  12. WARFARIN [Concomitant]
     Active Substance: WARFARIN
     Dosage: 3.5 MG, QD, AFTER DINNER
     Route: 048
     Dates: start: 20181116, end: 20181206
  13. ISOTONIC SODIUM CHLORIDE SOLUTION [Concomitant]
     Active Substance: SODIUM CHLORIDE
     Dosage: 200 ML
     Route: 042
     Dates: start: 20180718, end: 20180725
  14. SOLACET F [Concomitant]
     Active Substance: CALCIUM CHLORIDE\POTASSIUM CHLORIDE\SODIUM ACETATE\SODIUM CHLORIDE
     Dosage: 500 MILLILITER
     Route: 042
     Dates: end: 20180723
  15. TELMISARTAN. [Concomitant]
     Active Substance: TELMISARTAN
     Dosage: 80 MILLIGRAM
     Route: 048
     Dates: end: 20170727
  16. TELMISARTAN. [Concomitant]
     Active Substance: TELMISARTAN
     Dosage: 80 MILLIGRAM
     Route: 048
     Dates: start: 20180803, end: 20181113
  17. TRAZENTA [Concomitant]
     Active Substance: LINAGLIPTIN
     Dosage: 5 MILLIGRAM
     Route: 048
     Dates: end: 20180727
  18. METHYCOBAL [Concomitant]
     Active Substance: METHYLCOBALAMIN
     Dosage: 500 UG, TID, AFTER BREAKFAST, LUNCH AND DINNER
     Route: 048
     Dates: start: 20181116, end: 20181206
  19. WARFARIN [Concomitant]
     Active Substance: WARFARIN
     Dosage: 3.5 MG, QD, AFTER DINNER
     Route: 048
     Dates: start: 20180831, end: 20180913
  20. FEBURIC [Concomitant]
     Active Substance: FEBUXOSTAT
     Dosage: 10 MG
     Route: 048
     Dates: start: 20180803, end: 20181113
  21. HERBESSER [Concomitant]
     Active Substance: DILTIAZEM HYDROCHLORIDE
     Dosage: 100 MG, QD,AFTER BREAKFAST
     Route: 048
     Dates: start: 20181116, end: 20181206
  22. RABEPRAZOLE NA [Concomitant]
     Active Substance: RABEPRAZOLE SODIUM
     Dosage: 10 MG, QD, AFTER BREAKFAST
     Route: 048
     Dates: start: 20180803, end: 20181113
  23. WARFARIN [Concomitant]
     Active Substance: WARFARIN
     Dosage: 3.5 MG, QD, AFTER DINNER
     Route: 048
     Dates: end: 20180804
  24. WARFARIN [Concomitant]
     Active Substance: WARFARIN
     Dosage: 3.5 MG, QD, AFTER DINNER
     Route: 048
     Dates: start: 20181106, end: 20181113
  25. ISOTONIC SODIUM CHLORIDE SOLUTION [Concomitant]
     Active Substance: SODIUM CHLORIDE
     Dosage: 100 ML
     Route: 042
     Dates: start: 20180726, end: 20180726
  26. MIRCERA [Concomitant]
     Active Substance: METHOXY POLYETHYLENE GLYCOL-EPOETIN BETA
     Dosage: 150 UG
     Route: 058
     Dates: start: 20181025, end: 20181025
  27. CILNIDIPINE [Concomitant]
     Active Substance: CILNIDIPINE
     Dosage: 10 MG, QD, AFTER BREAKFAST
     Route: 048
     Dates: end: 20180727
  28. CILNIDIPINE [Concomitant]
     Active Substance: CILNIDIPINE
     Dosage: 10 MG, QD, AFTER DINNER
     Route: 048
     Dates: start: 20180725, end: 20180727
  29. CILNIDIPINE [Concomitant]
     Active Substance: CILNIDIPINE
     Dosage: 10 MG, BID, AFTER BREAKFAST AND DINNER
     Route: 048
     Dates: start: 20181116, end: 20181206
  30. METHYCOBAL [Concomitant]
     Active Substance: METHYLCOBALAMIN
     Dosage: 500 UG, TID, AFTER BREAKFAST, LUNCH AND DINNER
     Route: 048
     Dates: start: 20180803, end: 20181113
  31. NESP [Suspect]
     Active Substance: DARBEPOETIN ALFA
     Dosage: 120 MICROGRAM, Q2WK
     Route: 065
     Dates: start: 20180914, end: 20180928
  32. TRAZENTA [Concomitant]
     Active Substance: LINAGLIPTIN
     Dosage: 5 MILLIGRAM
     Route: 048
     Dates: start: 20180803, end: 20181113
  33. TRAZENTA [Concomitant]
     Active Substance: LINAGLIPTIN
     Dosage: 5 MILLIGRAM
     Route: 048
     Dates: start: 20181116, end: 20181206
  34. HERBESSER [Concomitant]
     Active Substance: DILTIAZEM HYDROCHLORIDE
     Dosage: 100 MG, QD,AFTER BREAKFAST
     Route: 048
     Dates: end: 20180727
  35. RABEPRAZOLE NA [Concomitant]
     Active Substance: RABEPRAZOLE SODIUM
     Dosage: 10 MG, QD, AFTER BREAKFAST
     Route: 048
     Dates: end: 20180727
  36. RABEPRAZOLE NA [Concomitant]
     Active Substance: RABEPRAZOLE SODIUM
     Dosage: 10 MG, QD, AFTER BREAKFAST
     Route: 048
     Dates: start: 20181116, end: 20181206
  37. SULTAMUGIN [Concomitant]
     Dosage: 2 G
     Route: 042
     Dates: start: 20180718, end: 20180725
  38. BIKEN HA [Concomitant]
     Active Substance: INFLUENZA VIRUS VACCINE
     Dosage: 0.5 ML
     Route: 058
     Dates: start: 20181116, end: 20181116
  39. CILNIDIPINE [Concomitant]
     Active Substance: CILNIDIPINE
     Dosage: 10 MG, BID, AFTER BREAKFAST AND DINNER
     Route: 048
     Dates: start: 20180803, end: 20181113
  40. FEBURIC [Concomitant]
     Active Substance: FEBUXOSTAT
     Dosage: 20 MG
     Route: 048
     Dates: end: 20180727

REACTIONS (1)
  - Aplasia pure red cell [Not Recovered/Not Resolved]

NARRATIVE: CASE EVENT DATE: 20181116
